FAERS Safety Report 15621917 (Version 1)
Quarter: 2018Q4

REPORT INFORMATION
  Report Type: Spontaneous
  Country: US (occurrence: US)
  Receive Date: 20181115
  Receipt Date: 20181115
  Transmission Date: 20190205
  Serious: Yes (Other)
  Sender: FDA-Public Use
  Company Number: US-TEVA-2018-US-975992

PATIENT
  Sex: Male

DRUGS (1)
  1. SUMATRIPTAN SUCCINATE INJECTION [Suspect]
     Active Substance: SUMATRIPTAN SUCCINATE
     Indication: MIGRAINE
     Dosage: AUTO INJECTION SYSTEM 6MG/0.5ML-DRL 2CT
     Route: 065

REACTIONS (7)
  - Syringe issue [Unknown]
  - Product dose omission [Unknown]
  - Off label use [Unknown]
  - Migraine [Unknown]
  - Hyponatraemic syndrome [Unknown]
  - Drug ineffective [Unknown]
  - Product quality issue [Unknown]
